FAERS Safety Report 14952168 (Version 2)
Quarter: 2018Q2

REPORT INFORMATION
  Report Type: Spontaneous
  Country: CH (occurrence: CH)
  Receive Date: 20180530
  Receipt Date: 20180606
  Transmission Date: 20180711
  Serious: Yes (Death, Hospitalization)
  Sender: FDA-Public Use
  Company Number: CH-PFIZER INC-2018214286

PATIENT
  Age: 73 Year
  Sex: Male

DRUGS (25)
  1. WELLVONE [Suspect]
     Active Substance: ATOVAQUONE
     Indication: PNEUMOCYSTIS JIROVECII INFECTION
     Dosage: 750 MG, 2X/DAY
     Route: 048
     Dates: start: 20180413, end: 20180419
  2. SPIRICORT [Suspect]
     Active Substance: PREDNISOLONE
     Indication: ALVEOLITIS ALLERGIC
     Dosage: 1 DF, UNK
     Route: 048
     Dates: end: 201803
  3. CORDARONE [Concomitant]
     Active Substance: AMIODARONE HYDROCHLORIDE
     Dosage: 150 MG, 2X/DAY
     Route: 042
     Dates: start: 201804, end: 20180418
  4. VITARUBIN [Concomitant]
     Active Substance: CYANOCOBALAMIN
     Dosage: 1000 UG, UNK
     Route: 058
     Dates: start: 20180412
  5. TOREM [Concomitant]
     Active Substance: TORSEMIDE
     Dosage: 10 MG, 3X/DAY
     Dates: start: 201803, end: 20180405
  6. DISOPRIVAN [Concomitant]
     Active Substance: PROPOFOL
     Dosage: 1 DF, 1X/DAY
     Route: 051
     Dates: start: 20180407, end: 20180419
  7. SINTENYL [Concomitant]
     Active Substance: FENTANYL CITRATE
     Dosage: 1 DF, 1X/DAY
     Dates: start: 20180407
  8. CALCIMAGON [Concomitant]
     Active Substance: CALCIUM
     Dosage: 1 DF, 1X/DAY
     Dates: start: 201803, end: 201804
  9. PANTOPRAZOL [Concomitant]
     Active Substance: PANTOPRAZOLE SODIUM
     Dosage: 40 MG, 1X/DAY
     Dates: start: 201803, end: 20180407
  10. NORADRENALIN [Concomitant]
     Active Substance: NOREPINEPHRINE\NOREPINEPHRINE BITARTRATE
     Dosage: 1 DF, 1X/DAY
     Dates: start: 20180418
  11. BACTRIM [Suspect]
     Active Substance: SULFAMETHOXAZOLE\TRIMETHOPRIM
     Indication: PNEUMOCYSTIS JIROVECII INFECTION
     Dosage: 5.5 DF, 4X/DAY
     Route: 051
     Dates: start: 20180404, end: 20180409
  12. LASIX [Concomitant]
     Active Substance: FUROSEMIDE
     Dosage: 1 DF, 1X/DAY
     Dates: start: 20180405, end: 20180408
  13. ADRENALIN [Concomitant]
     Active Substance: EPINEPHRINE
     Dosage: 1 DF, 1X/DAY
     Route: 042
     Dates: start: 20180418, end: 20180418
  14. CORDARONE [Concomitant]
     Active Substance: AMIODARONE HYDROCHLORIDE
     Dosage: 200 MG, 1X/DAY
     Route: 048
     Dates: start: 201803, end: 201804
  15. DOBUTREX [Concomitant]
     Active Substance: DOBUTAMINE HYDROCHLORIDE
     Dosage: 1 DF, 1X/DAY
     Dates: start: 20180418
  16. SOLU-MEDROL [Suspect]
     Active Substance: METHYLPREDNISOLONE SODIUM SUCCINATE
     Indication: ALVEOLITIS ALLERGIC
     Dosage: 1 DF, 2X/DAY
     Route: 051
     Dates: start: 20180409, end: 20180418
  17. HEPARIN [Suspect]
     Active Substance: HEPARIN SODIUM
     Indication: PROPHYLAXIS
     Dosage: 10800 IU, UNK
     Route: 051
     Dates: start: 20180418
  18. ELIQUIS [Concomitant]
     Active Substance: APIXABAN
     Dosage: 5 MG, 2X/DAY
     Route: 048
     Dates: start: 201802, end: 20180417
  19. NEOSYNEPHRINE [Concomitant]
     Active Substance: PHENYLEPHRINE HYDROCHLORIDE
     Dosage: 1 DF, 1X/DAY
     Route: 042
     Dates: start: 20180418, end: 20180418
  20. MORPHIN [Concomitant]
     Active Substance: MORPHINE
     Dosage: 1 DF, UNK
     Route: 042
     Dates: start: 20180419
  21. ADRENALIN [Suspect]
     Active Substance: EPINEPHRINE
     Dosage: UNK
     Route: 051
     Dates: start: 20180419
  22. BACTRIM [Suspect]
     Active Substance: SULFAMETHOXAZOLE\TRIMETHOPRIM
     Dosage: 5.5 DF, 3X/DAY
     Route: 051
     Dates: start: 20180409, end: 20180413
  23. ACIDUM FOLICUM [Concomitant]
     Active Substance: FOLIC ACID
     Dosage: 5 MG, 1X/DAY
     Dates: start: 20180411
  24. NOVORAPID [Concomitant]
     Active Substance: INSULIN ASPART
     Dosage: 1 DF, UNK
  25. PIPERACILLIN AND TAZOBACTAM [Concomitant]
     Active Substance: PIPERACILLIN SODIUM\TAZOBACTAM SODIUM
     Dosage: 4.5 G, 3X/DAY
     Route: 051
     Dates: start: 20180407, end: 20180415

REACTIONS (10)
  - Cerebral vasoconstriction [Unknown]
  - Cerebral haemorrhage [Fatal]
  - Blood pressure increased [Unknown]
  - Pneumocystis jirovecii infection [Unknown]
  - Hypernatraemia [Unknown]
  - Acute kidney injury [Recovered/Resolved]
  - Pneumocystis jirovecii pneumonia [Unknown]
  - Hyperkalaemia [Unknown]
  - Haemolysis [Unknown]
  - Wrong drug administered [Unknown]

NARRATIVE: CASE EVENT DATE: 2018
